FAERS Safety Report 22268245 (Version 3)
Quarter: 2023Q2

REPORT INFORMATION
  Report Type: Spontaneous
  Country: US (occurrence: US)
  Receive Date: 20230430
  Receipt Date: 20230626
  Transmission Date: 20230722
  Serious: Yes (Other)
  Sender: FDA-Public Use
  Company Number: US-SA-SAC20230424001256

PATIENT
  Sex: Female

DRUGS (1)
  1. DUPIXENT [Suspect]
     Active Substance: DUPILUMAB
     Indication: Sinusitis
     Dosage: 600 MG, 1X
     Route: 058

REACTIONS (4)
  - Cerebrovascular accident [Unknown]
  - Rhinorrhoea [Recovering/Resolving]
  - Nasopharyngitis [Unknown]
  - Product use in unapproved indication [Unknown]
